FAERS Safety Report 7954910-9 (Version None)
Quarter: 2011Q4

REPORT INFORMATION
  Report Type: 
  Country: None (occurrence: None)
  Receive Date: 20111202
  Receipt Date: 20111128
  Transmission Date: 20120403
  Serious: Yes (Life-Threatening)
  Sender: FDA-Public Use
  Company Number: IN-B.I. PHARMACEUTICALS,INC./RIDGEFIELD-2011-BP-25719BP

PATIENT
  Sex: Male
  Weight: 47 kg

DRUGS (5)
  1. EMTRICITABINE/TENOFOVIR DISOPROXIL FUMARATE [Suspect]
     Indication: HIV INFECTION
     Dosage: 200 MG/300 MG
     Route: 048
     Dates: start: 20110120
  2. VIRAMUNE [Suspect]
     Indication: HIV INFECTION
     Dosage: 200 MG
     Route: 048
     Dates: start: 20110120
  3. MULTI-VITAMIN [Concomitant]
     Indication: ROUTINE HEALTH MAINTENANCE
     Route: 048
     Dates: end: 20111027
  4. ACETAMINOPHEN [Concomitant]
     Indication: HEAD DISCOMFORT
     Dosage: 1000 MG
     Route: 048
     Dates: end: 20110901
  5. VIRAMUNE [Suspect]
     Dosage: 400 MG
     Route: 048
     Dates: start: 20110203

REACTIONS (2)
  - SUICIDAL IDEATION [None]
  - SUICIDE ATTEMPT [None]
